FAERS Safety Report 4619694-0 (Version None)
Quarter: 2005Q1

REPORT INFORMATION
  Report Type: 
  Country: None (occurrence: None)
  Receive Date: 20050317
  Receipt Date: 20050317
  Transmission Date: 20050727
  Serious: Yes (Hospitalization)
  Sender: FDA-Public Use
  Company Number: None

PATIENT
  Age: 78 Year
  Sex: Female
  Weight: 130.5 kg

DRUGS (7)
  1. NEULASTA [Suspect]
     Indication: BONE MARROW DEPRESSION
     Dosage: 6 MG ONCE SUBCUTANEOUS
     Route: 058
     Dates: start: 20040817, end: 20040817
  2. NEULASTA [Suspect]
     Indication: CHEMOTHERAPY
     Dosage: 6 MG ONCE SUBCUTANEOUS
     Route: 058
     Dates: start: 20040817, end: 20040817
  3. CISPLATIN [Suspect]
     Indication: OVARIAN CANCER
     Dosage: 120 MG ONCE INTRAVENOUS
     Route: 042
     Dates: start: 20040816, end: 20040816
  4. METOPROLOL TARTRATE [Concomitant]
  5. SIMVASTATIN [Concomitant]
  6. LORAZEPAM [Concomitant]
  7. TRIMETHOBENZAMIDE [Concomitant]

REACTIONS (6)
  - ACCELERATED HYPERTENSION [None]
  - ACUTE RESPIRATORY FAILURE [None]
  - CARDIOVASCULAR DISORDER [None]
  - CHEST PAIN [None]
  - DRUG HYPERSENSITIVITY [None]
  - PULMONARY OEDEMA [None]
